FAERS Safety Report 9770334 (Version 1)
Quarter: 2013Q4

REPORT INFORMATION
  Report Type: Spontaneous
  Country: AU (occurrence: AU)
  Receive Date: 20131218
  Receipt Date: 20131218
  Transmission Date: 20140711
  Serious: No
  Sender: FDA-Public Use
  Company Number: AU-B.I. PHARMACEUTICALS,INC./RIDGEFIELD-2013-BI-40773AU

PATIENT
  Sex: 0

DRUGS (1)
  1. LINAGLIPTIN [Suspect]

REACTIONS (2)
  - Pancreatitis [Unknown]
  - Gastrointestinal disorder [Unknown]
